FAERS Safety Report 8940598 (Version 2)
Quarter: 2015Q1

REPORT INFORMATION
  Report Type: Report from Study
  Country: FR (occurrence: FR)
  Receive Date: 20121203
  Receipt Date: 20150107
  Transmission Date: 20150721
  Serious: Yes (Hospitalization)
  Sender: FDA-Public Use
  Company Number: FR-ROCHE-1162742

PATIENT
  Age: 83 Year
  Sex: Female

DRUGS (29)
  1. CORTANCYL [Concomitant]
     Active Substance: PREDNISONE
     Route: 065
     Dates: start: 20070718
  2. TAHOR [Concomitant]
     Active Substance: ATORVASTATIN CALCIUM
     Route: 065
     Dates: start: 20090715
  3. TAHOR [Concomitant]
     Active Substance: ATORVASTATIN CALCIUM
     Route: 065
     Dates: start: 20100127
  4. TAHOR [Concomitant]
     Active Substance: ATORVASTATIN CALCIUM
     Route: 065
  5. RITUXIMAB [Suspect]
     Active Substance: RITUXIMAB
     Route: 042
     Dates: start: 20100929
  6. RITUXIMAB [Suspect]
     Active Substance: RITUXIMAB
     Dosage: DAY 15
     Route: 042
     Dates: start: 20101013
  7. CORTANCYL [Concomitant]
     Active Substance: PREDNISONE
     Route: 065
     Dates: start: 20100127
  8. RITUXIMAB [Suspect]
     Active Substance: RITUXIMAB
     Dosage: DAY 1
     Route: 042
     Dates: start: 20090701
  9. RITUXIMAB [Suspect]
     Active Substance: RITUXIMAB
     Dosage: DAY 15
     Route: 042
     Dates: start: 20090715
  10. CORTANCYL [Concomitant]
     Active Substance: PREDNISONE
     Route: 065
     Dates: start: 20090701
  11. AZATHIOPRINE. [Concomitant]
     Active Substance: AZATHIOPRINE
     Route: 065
     Dates: start: 20090701
  12. CORTANCYL [Concomitant]
     Active Substance: PREDNISONE
     Route: 065
     Dates: start: 20100929
  13. CORTANCYL [Concomitant]
     Active Substance: PREDNISONE
     Route: 065
     Dates: start: 20101013
  14. AZATHIOPRINE. [Concomitant]
     Active Substance: AZATHIOPRINE
     Route: 065
     Dates: start: 20100127
  15. AZATHIOPRINE. [Concomitant]
     Active Substance: AZATHIOPRINE
     Route: 065
     Dates: start: 20100210
  16. RITUXIMAB [Suspect]
     Active Substance: RITUXIMAB
     Dosage: DAY 15
     Route: 042
     Dates: start: 20100210
  17. CORTANCYL [Concomitant]
     Active Substance: PREDNISONE
     Route: 065
     Dates: start: 20090715
  18. CORTANCYL [Concomitant]
     Active Substance: PREDNISONE
     Route: 065
     Dates: start: 20100210
  19. AZATHIOPRINE. [Concomitant]
     Active Substance: AZATHIOPRINE
     Route: 065
     Dates: start: 20070718
  20. TAHOR [Concomitant]
     Active Substance: ATORVASTATIN CALCIUM
     Route: 065
     Dates: start: 20100929
  21. RITUXIMAB [Suspect]
     Active Substance: RITUXIMAB
     Dosage: DAY 15
     Route: 042
     Dates: start: 20070718
  22. AZATHIOPRINE. [Concomitant]
     Active Substance: AZATHIOPRINE
     Route: 065
     Dates: start: 20070705
  23. AZATHIOPRINE. [Concomitant]
     Active Substance: AZATHIOPRINE
     Route: 065
     Dates: start: 20090715
  24. AZATHIOPRINE. [Concomitant]
     Active Substance: AZATHIOPRINE
     Route: 065
     Dates: start: 20100929
  25. AZATHIOPRINE. [Concomitant]
     Active Substance: AZATHIOPRINE
     Route: 065
     Dates: start: 20101013
  26. RITUXIMAB [Suspect]
     Active Substance: RITUXIMAB
     Indication: RHEUMATOID ARTHRITIS
     Dosage: DAY 1
     Route: 042
     Dates: start: 20070705
  27. RITUXIMAB [Suspect]
     Active Substance: RITUXIMAB
     Dosage: DAY 1
     Route: 042
     Dates: start: 20100127
  28. CORTANCYL [Concomitant]
     Active Substance: PREDNISONE
     Route: 065
     Dates: start: 20070705
  29. TAHOR [Concomitant]
     Active Substance: ATORVASTATIN CALCIUM
     Route: 065
     Dates: start: 20090701

REACTIONS (4)
  - Bronchopneumonia [Recovered/Resolved]
  - Bronchitis [Recovered/Resolved]
  - Lung disorder [Recovered/Resolved]
  - Basal cell carcinoma [Recovered/Resolved]

NARRATIVE: CASE EVENT DATE: 2009
